FAERS Safety Report 8118400-5 (Version None)
Quarter: 2012Q1

REPORT INFORMATION
  Report Type: 
  Country: None (occurrence: None)
  Receive Date: 20120207
  Receipt Date: 20120131
  Transmission Date: 20120608
  Serious: Yes (Death, Hospitalization, Other)
  Sender: FDA-Public Use
  Company Number: US-JNJFOC-20090907374

PATIENT
  Sex: Female
  Weight: 56 kg

DRUGS (14)
  1. LEVALBUTEROL HCL [Concomitant]
     Indication: ACUTE RESPIRATORY DISTRESS SYNDROME
     Route: 065
     Dates: start: 20090518, end: 20090529
  2. METHADONE HCL [Concomitant]
     Route: 048
     Dates: start: 20090519, end: 20090524
  3. PANTOPRAZOLE [Concomitant]
     Indication: GASTROINTESTINAL DISORDER THERAPY
     Route: 042
     Dates: start: 20090518, end: 20090528
  4. DEXAMETHASONE [Concomitant]
     Indication: PRODUCT USED FOR UNKNOWN INDICATION
     Route: 065
  5. DORIBAX [Suspect]
     Indication: PNEUMONIA ASPIRATION
     Route: 041
     Dates: start: 20090525, end: 20090601
  6. METHADONE HCL [Concomitant]
     Route: 048
     Dates: start: 20090527, end: 20090528
  7. METHADONE HCL [Concomitant]
     Route: 048
     Dates: start: 20090525, end: 20090526
  8. METHADONE HCL [Concomitant]
     Route: 048
     Dates: start: 20090527
  9. DILAUDID [Concomitant]
     Indication: PRODUCT USED FOR UNKNOWN INDICATION
     Route: 065
  10. METHADONE HCL [Concomitant]
     Route: 048
     Dates: start: 20090525
  11. VORICONAZOLE [Concomitant]
     Indication: PNEUMONIA ASPIRATION
     Route: 048
     Dates: start: 20090525, end: 20090528
  12. LORAZEPAM [Concomitant]
     Indication: PRODUCT USED FOR UNKNOWN INDICATION
     Route: 065
  13. METHADONE HCL [Concomitant]
     Indication: PAIN
     Route: 048
     Dates: start: 20090528, end: 20090531
  14. METHADONE HCL [Concomitant]
     Route: 048
     Dates: start: 20090524, end: 20090526

REACTIONS (2)
  - LEUKOENCEPHALOPATHY [None]
  - INTESTINAL OBSTRUCTION [None]
